FAERS Safety Report 4483417-9 (Version None)
Quarter: 2004Q4

REPORT INFORMATION
  Report Type: 
  Country: None (occurrence: None)
  Receive Date: 20041020
  Receipt Date: 20041004
  Transmission Date: 20050328
  Serious: Yes (Death, Other)
  Sender: FDA-Public Use
  Company Number: USA030639081

PATIENT
  Age: 61 Year
  Sex: Female
  Weight: 48 kg

DRUGS (5)
  1. FORTEO [Suspect]
     Indication: OSTEOPOROSIS
     Dosage: 20 UG/1 DAY
     Dates: start: 20030609
  2. NEURONTIN [Concomitant]
  3. ALPRAZOLAM [Concomitant]
  4. AMITRIPTYLINE HCL [Concomitant]
  5. MORPHINE [Concomitant]

REACTIONS (17)
  - ACCIDENTAL OVERDOSE [None]
  - ANEURYSM [None]
  - ARRHYTHMIA [None]
  - BACK PAIN [None]
  - BEREAVEMENT REACTION [None]
  - BLOOD CALCIUM DECREASED [None]
  - CHEST PAIN [None]
  - DEPRESSED MOOD [None]
  - FALL [None]
  - INCOHERENT [None]
  - INJECTION SITE PAIN [None]
  - PAIN [None]
  - PAIN EXACERBATED [None]
  - PHARMACEUTICAL PRODUCT COMPLAINT [None]
  - SPINAL FRACTURE [None]
  - TREATMENT NONCOMPLIANCE [None]
  - URTICARIA [None]
